FAERS Safety Report 17510152 (Version 1)
Quarter: 2020Q1

REPORT INFORMATION
  Report Type: Spontaneous
  Country: US (occurrence: US)
  Receive Date: 20200226
  Receipt Date: 20200226
  Transmission Date: 20200409
  Serious: Yes (Death, Hospitalization)
  Sender: FDA-Public Use
  Company Number: None

PATIENT
  Age: 82 Year
  Sex: Female
  Weight: 90 kg

DRUGS (1)
  1. VITAMIN D [Suspect]
     Active Substance: VITAMIN D NOS
     Indication: VITAMIN D DEFICIENCY
     Route: 048
     Dates: start: 20191218

REACTIONS (7)
  - Sepsis [None]
  - Tachycardia [None]
  - Dysuria [None]
  - Fungal infection [None]
  - Diarrhoea [None]
  - Pulmonary embolism [None]
  - Hypotension [None]

NARRATIVE: CASE EVENT DATE: 20200217
